FAERS Safety Report 7770704-1 (Version None)
Quarter: 2011Q3

REPORT INFORMATION
  Report Type: 
  Country: None (occurrence: None)
  Receive Date: 20110922
  Receipt Date: 20101025
  Transmission Date: 20111222
  Serious: No
  Sender: FDA-Public Use
  Company Number: US-ASTRAZENECA-2010SE50527

PATIENT
  Age: 39 Year
  Sex: Female

DRUGS (1)
  1. SEROQUEL XR [Suspect]
     Indication: BIPOLAR DISORDER
     Dosage: HS
     Route: 048
     Dates: start: 20090901

REACTIONS (4)
  - HYPERHIDROSIS [None]
  - DRUG DOSE OMISSION [None]
  - BALANCE DISORDER [None]
  - INSOMNIA [None]
